FAERS Safety Report 5929709-5 (Version None)
Quarter: 2008Q3

REPORT INFORMATION
  Report Type: 
  Country: None (occurrence: None)
  Receive Date: 20080929
  Receipt Date: 20080714
  Transmission Date: 20090109
  Serious: No
  Sender: FDA-Public Use
  Company Number: PHEH2008US06220

PATIENT
  Sex: Female

DRUGS (1)
  1. TASIGNA [Suspect]
     Dosage: ORAL
     Route: 048
     Dates: start: 20080707

REACTIONS (3)
  - ABDOMINAL PAIN UPPER [None]
  - HYPOKINESIA [None]
  - MYALGIA [None]
